FAERS Safety Report 14995618 (Version 1)
Quarter: 2018Q2

REPORT INFORMATION
  Report Type: Spontaneous
  Country: US (occurrence: US)
  Receive Date: 20180611
  Receipt Date: 20180611
  Transmission Date: 20180711
  Serious: Yes (Hospitalization)
  Sender: FDA-Public Use
  Company Number: US-LPDUSPRD-20181024

PATIENT

DRUGS (5)
  1. BUPIVICAINE [Concomitant]
     Active Substance: BUPIVACAINE
     Dosage: 0.125%
     Route: 064
  2. BUPRENORPHINE. [Concomitant]
     Active Substance: BUPRENORPHINE
     Dosage: 16 MG DAILY
     Route: 064
  3. CLONIDINE HYDROCHLORIDE INJECTION, USP (0730-01) [Suspect]
     Active Substance: CLONIDINE HYDROCHLORIDE
     Dosage: 1.2 MCG/ML
     Route: 064
  4. EPINEPHRINE INJECTION, USP (1071-25) [Concomitant]
     Active Substance: EPINEPHRINE
     Dosage: 1.2 MCG/ML
     Route: 064
  5. FENTANYL. [Concomitant]
     Active Substance: FENTANYL
     Dosage: 5 MCG
     Route: 064

REACTIONS (3)
  - Foetal exposure during pregnancy [Unknown]
  - Off label use [Unknown]
  - Foetal heart rate deceleration abnormality [Unknown]
